FAERS Safety Report 5704458-7 (Version None)
Quarter: 2008Q2

REPORT INFORMATION
  Report Type: 
  Country: None (occurrence: None)
  Receive Date: 20080411
  Receipt Date: 20080411
  Transmission Date: 20081010
  Serious: Yes (Life-Threatening)
  Sender: FDA-Public Use
  Company Number: None

PATIENT
  Age: 65 Year
  Sex: Male
  Weight: 92.9874 kg

DRUGS (1)
  1. ASACOL [Suspect]
     Indication: COLITIS ULCERATIVE
     Dosage: 3 PILLS  3 TIMES A DAY
     Dates: start: 20050301, end: 20080301

REACTIONS (4)
  - CONDITION AGGRAVATED [None]
  - DIARRHOEA [None]
  - FLATULENCE [None]
  - RENAL FAILURE ACUTE [None]
